FAERS Safety Report 8822232 (Version 3)
Quarter: 2014Q1

REPORT INFORMATION
  Report Type: Spontaneous
  Country: US (occurrence: US)
  Receive Date: 20121003
  Receipt Date: 20140213
  Transmission Date: 20141002
  Serious: No
  Sender: FDA-Public Use
  Company Number: US-PFIZER INC-2012240564

PATIENT
  Age: 64 Year
  Sex: Female

DRUGS (7)
  1. XALKORI [Suspect]
     Indication: LUNG NEOPLASM MALIGNANT
     Dosage: 200 MG, 1X/DAY
     Route: 048
     Dates: start: 20120830
  2. XALKORI [Suspect]
     Dosage: UNK
  3. FISH OIL [Concomitant]
  4. ASPIRIN [Concomitant]
     Dosage: UNK
  5. CITRACAL D [Concomitant]
     Dosage: UNK
  6. APPEAREX [Concomitant]
     Dosage: UNK
  7. FOSAMAX [Concomitant]
     Dosage: UNK

REACTIONS (7)
  - Malaise [Unknown]
  - Musculoskeletal pain [Unknown]
  - Arthralgia [Unknown]
  - Spinal column stenosis [Unknown]
  - Intervertebral disc protrusion [Unknown]
  - Back pain [Unknown]
  - Eyelid ptosis [Unknown]
